FAERS Safety Report 9441519 (Version 1)
Quarter: 2013Q3

REPORT INFORMATION
  Report Type: Spontaneous
  Country: TR (occurrence: TR)
  Receive Date: 20130805
  Receipt Date: 20130805
  Transmission Date: 20140515
  Serious: Yes (Hospitalization)
  Sender: FDA-Public Use
  Company Number: TR-MYLANLABS-2013S1016588

PATIENT
  Age: 50 Year
  Sex: Female

DRUGS (8)
  1. IRINOTECAN [Suspect]
     Indication: ADENOCARCINOMA OF COLON
  2. FLUOROURACIL [Suspect]
     Indication: ADENOCARCINOMA OF COLON
  3. FOLINIC ACID [Suspect]
     Indication: ADENOCARCINOMA OF COLON
  4. DEXAMETHASONE [Suspect]
     Route: 042
  5. ONDANSETRON [Suspect]
     Indication: PROPHYLAXIS OF NAUSEA AND VOMITING
     Route: 042
  6. CODEINE [Suspect]
     Indication: ANALGESIC THERAPY
     Route: 048
  7. PIROXICAM [Suspect]
     Indication: ANALGESIC THERAPY
  8. OMEPRAZOLE [Suspect]
     Indication: PROPHYLAXIS AGAINST GASTROINTESTINAL ULCER

REACTIONS (1)
  - Pancreatitis [Recovered/Resolved]
